FAERS Safety Report 14221594 (Version 4)
Quarter: 2018Q2

REPORT INFORMATION
  Report Type: Report from Study
  Country: CA (occurrence: CA)
  Receive Date: 20171123
  Receipt Date: 20180404
  Transmission Date: 20180711
  Serious: Yes (Hospitalization, Other)
  Sender: FDA-Public Use
  Company Number: CA-BRISTOL-MYERS SQUIBB COMPANY-BMS-2017-055394

PATIENT
  Age: 77 Year
  Sex: Male

DRUGS (1)
  1. ABATACEPT [Suspect]
     Active Substance: ABATACEPT
     Indication: RHEUMATOID ARTHRITIS
     Dosage: 750 MG, Q4WK
     Route: 042
     Dates: start: 20110601

REACTIONS (11)
  - Lung infection [Unknown]
  - Pneumonia [Unknown]
  - Gait disturbance [Unknown]
  - Pain in extremity [Unknown]
  - Cognitive disorder [Unknown]
  - Arthralgia [Unknown]
  - Prostatic specific antigen increased [Unknown]
  - Wound [Recovering/Resolving]
  - Wound haemorrhage [Unknown]
  - Cataract [Unknown]
  - Joint swelling [Unknown]

NARRATIVE: CASE EVENT DATE: 20170918
